FAERS Safety Report 10040638 (Version 1)
Quarter: 2014Q1

REPORT INFORMATION
  Report Type: Spontaneous
  Country: US (occurrence: US)
  Receive Date: 20140327
  Receipt Date: 20140327
  Transmission Date: 20141002
  Serious: Yes (Other)
  Sender: FDA-Public Use
  Company Number: US-BAYER-2014-045422

PATIENT
  Age: 41 Year
  Sex: Female
  Weight: 80.86 kg

DRUGS (9)
  1. YAZ [Suspect]
  2. OXYBUTYNIN [Concomitant]
     Indication: STRESS URINARY INCONTINENCE
     Route: 048
  3. PROZAC [Concomitant]
     Indication: AFFECT LABILITY
     Route: 048
  4. PEPCID [Concomitant]
     Indication: GASTROOESOPHAGEAL REFLUX DISEASE
     Route: 048
  5. MULTIVITAMIN [Concomitant]
  6. IBUPROFEN [Concomitant]
  7. FAMOTIDINE [Concomitant]
  8. METOCLOPRAMIDE [Concomitant]
  9. VICODIN [Concomitant]

REACTIONS (1)
  - Pulmonary embolism [None]
